FAERS Safety Report 21916058 (Version 2)
Quarter: 2023Q1

REPORT INFORMATION
  Report Type: Spontaneous
  Country: AU (occurrence: AU)
  Receive Date: 20230126
  Receipt Date: 20230202
  Transmission Date: 20230417
  Serious: Yes (Other)
  Sender: FDA-Public Use
  Company Number: AU-MYLANLABS-2023M1007532

PATIENT
  Age: 49 Year
  Sex: Male
  Weight: 142.2 kg

DRUGS (2)
  1. CLOZARIL [Suspect]
     Active Substance: CLOZAPINE
     Indication: Schizophrenia
     Dosage: 675 MILLIGRAM, QD
     Route: 048
     Dates: start: 20160114
  2. CLOZARIL [Suspect]
     Active Substance: CLOZAPINE
     Dosage: 650 MILLIGRAM, QD
     Route: 048

REACTIONS (7)
  - Dementia [Unknown]
  - Schizophrenia [Unknown]
  - Obesity [Unknown]
  - Dysphagia [Unknown]
  - Blood glucose increased [Unknown]
  - White blood cell count increased [Recovered/Resolved]
  - Neutrophil count increased [Unknown]

NARRATIVE: CASE EVENT DATE: 20221202
